FAERS Safety Report 5834654-X (Version None)
Quarter: 2008Q3

REPORT INFORMATION
  Report Type: 
  Country: None (occurrence: None)
  Receive Date: 20080801
  Receipt Date: 20080716
  Transmission Date: 20090109
  Serious: Yes (Hospitalization)
  Sender: FDA-Public Use
  Company Number: 8034802

PATIENT
  Age: 38 Year
  Sex: Female
  Weight: 93.98 kg

DRUGS (3)
  1. KEPPRA [Suspect]
  2. TEMODAR [Suspect]
     Indication: GLIOBLASTOMA MULTIFORME
     Dosage: 150 MG/M2
     Dates: start: 20080723
  3. TOPAMAX [Suspect]

REACTIONS (19)
  - ACIDOSIS [None]
  - ALANINE AMINOTRANSFERASE INCREASED [None]
  - ASPARTATE AMINOTRANSFERASE INCREASED [None]
  - ASPIRATION [None]
  - ATELECTASIS [None]
  - BLOOD CREATINE PHOSPHOKINASE INCREASED [None]
  - COGNITIVE DISORDER [None]
  - CONVULSION [None]
  - DISORIENTATION [None]
  - DRUG LEVEL DECREASED [None]
  - HAEMOGLOBIN DECREASED [None]
  - NECROSIS [None]
  - PLATELET COUNT DECREASED [None]
  - PROCEDURAL COMPLICATION [None]
  - PYREXIA [None]
  - REFUSAL OF TREATMENT BY PATIENT [None]
  - STATUS EPILEPTICUS [None]
  - TROPONIN I INCREASED [None]
  - UNRESPONSIVE TO STIMULI [None]
